FAERS Safety Report 24708563 (Version 1)
Quarter: 2024Q4

REPORT INFORMATION
  Report Type: Report from Study
  Country: CA (occurrence: CA)
  Receive Date: 20241207
  Receipt Date: 20241207
  Transmission Date: 20250114
  Serious: Yes (Disabling, Other)
  Sender: JOHNSON AND JOHNSON
  Company Number: CA-JNJFOC-20241200930

PATIENT
  Age: 71 Year
  Sex: Female
  Weight: 99 kg

DRUGS (2)
  1. SIMPONI [Suspect]
     Active Substance: GOLIMUMAB
     Indication: Crohn^s disease
     Route: 058
     Dates: start: 20200503, end: 20241128
  2. SIMPONI [Suspect]
     Active Substance: GOLIMUMAB
     Indication: Colitis ulcerative

REACTIONS (2)
  - Renal cancer [Unknown]
  - Off label use [Unknown]

NARRATIVE: CASE EVENT DATE: 20241128
